FAERS Safety Report 23092403 (Version 1)
Quarter: 2023Q4

REPORT INFORMATION
  Report Type: Spontaneous
  Country: DK (occurrence: DK)
  Receive Date: 20231021
  Receipt Date: 20231021
  Transmission Date: 20240110
  Serious: Yes (Other)
  Sender: FDA-Public Use
  Company Number: None

PATIENT
  Age: 58 Year
  Sex: Male

DRUGS (10)
  1. CYCLOSPORINE [Suspect]
     Active Substance: CYCLOSPORINE
     Indication: Renal transplant
     Dates: start: 2014
  2. SIMVASTATIN [Concomitant]
     Active Substance: SIMVASTATIN
     Indication: Hypercholesterolaemia
     Dates: start: 20220316
  3. PANTOPRAZOLE SODIUM [Concomitant]
     Active Substance: PANTOPRAZOLE SODIUM
     Indication: Gastrooesophageal reflux disease
     Dates: start: 20140301
  4. CARVEDILOL STADA [Concomitant]
     Indication: Hypertension
     Dates: start: 20181010
  5. OCULAC [Concomitant]
     Indication: Eye drop instillation
     Dates: start: 20190218
  6. ALLOPURINOL [Concomitant]
     Active Substance: ALLOPURINOL
     Indication: Gout
     Dates: start: 20181219
  7. DORZOLAMID/TIMOLOL MEDICAL VALLEY [Concomitant]
     Indication: Glaucoma
     Dates: start: 20140420
  8. LOSARTAN MEDICAL VALLEY [Concomitant]
     Indication: Hypertension
     Dates: start: 20140818
  9. MYFENAX [Concomitant]
     Active Substance: MYCOPHENOLATE MOFETIL
     Indication: Prophylaxis against transplant rejection
     Dates: start: 20181218
  10. PREDNISON DAK [Concomitant]
     Indication: Adrenocortical steroid therapy
     Dosage: START DATE UNKNOWN, BUT AT LEAST FROM 24JUL2020.

REACTIONS (3)
  - Muscle atrophy [Not Recovered/Not Resolved]
  - Muscular weakness [Not Recovered/Not Resolved]
  - Neuropathy peripheral [Not Recovered/Not Resolved]

NARRATIVE: CASE EVENT DATE: 20220101
